FAERS Safety Report 8770848 (Version 2)
Quarter: 2012Q4

REPORT INFORMATION
  Report Type: 
  Country: AR (occurrence: AR)
  Receive Date: 20120906
  Receipt Date: 20120919
  Transmission Date: 20130627
  Serious: Yes (Other)
  Sender: FDA-Public Use
  Company Number: AR-PFIZER INC-2012217110

PATIENT
  Sex: Male

DRUGS (1)
  1. SUTENT [Suspect]
     Dosage: 50 mg, UNK

REACTIONS (4)
  - Second primary malignancy [Unknown]
  - Cerebellar tumour [Unknown]
  - Renal disorder [Unknown]
  - Generalised oedema [Unknown]
